FAERS Safety Report 24539895 (Version 1)
Quarter: 2024Q4

REPORT INFORMATION
  Report Type: Spontaneous
  Country: FR (occurrence: FR)
  Receive Date: 20241023
  Receipt Date: 20241023
  Transmission Date: 20250115
  Serious: Yes (Hospitalization, Other)
  Sender: PFIZER
  Company Number: None

PATIENT
  Age: 75 Year
  Sex: Female
  Weight: 55 kg

DRUGS (6)
  1. PEMETREXED [Suspect]
     Active Substance: PEMETREXED
     Indication: Lung adenocarcinoma
     Dosage: 1 DF, CYCLIC
     Route: 042
     Dates: start: 20240711, end: 20240802
  2. METHYLPREDNISOLONE SODIUM SUCCINATE [Suspect]
     Active Substance: METHYLPREDNISOLONE SODIUM SUCCINATE
     Indication: Premedication
     Dosage: 1 DF, CYCLIC
     Route: 042
     Dates: start: 20240711, end: 20240802
  3. CARBOPLATIN [Suspect]
     Active Substance: CARBOPLATIN
     Indication: Lung adenocarcinoma
     Dosage: 1 DF, CYCLIC
     Route: 042
     Dates: start: 20240711, end: 20240802
  4. AMIVANTAMAB [Suspect]
     Active Substance: AMIVANTAMAB
     Indication: Lung adenocarcinoma
     Dosage: 1400 MG, CYCLIC
     Route: 042
     Dates: start: 20240711, end: 20240802
  5. PREDNISOLONE [Suspect]
     Active Substance: PREDNISOLONE
     Indication: Premedication
     Dosage: 50 MG, CYCLIC
     Route: 048
     Dates: start: 20240710, end: 20240804
  6. ATORVASTATIN [Concomitant]
     Active Substance: ATORVASTATIN
     Dosage: UNK

REACTIONS (1)
  - Peptic ulcer perforation [Recovered/Resolved]

NARRATIVE: CASE EVENT DATE: 20240808
